FAERS Safety Report 16445627 (Version 1)
Quarter: 2019Q2

REPORT INFORMATION
  Report Type: Spontaneous
  Country: US (occurrence: US)
  Receive Date: 20190618
  Receipt Date: 20190618
  Transmission Date: 20190711
  Serious: Yes (Other)
  Sender: FDA-Public Use
  Company Number: US-MYLANLABS-2019M1054308

PATIENT
  Sex: Male

DRUGS (1)
  1. MUSE [Suspect]
     Active Substance: ALPROSTADIL
     Indication: PRODUCT USED FOR UNKNOWN INDICATION
     Dosage: UNK, QW

REACTIONS (5)
  - Dizziness [Unknown]
  - Hypoxia [Unknown]
  - Therapeutic response unexpected [Unknown]
  - Incorrect route of product administration [Unknown]
  - Blood pressure decreased [Unknown]
